FAERS Safety Report 14767664 (Version 6)
Quarter: 2018Q4

REPORT INFORMATION
  Report Type: Spontaneous
  Country: US (occurrence: US)
  Receive Date: 20180417
  Receipt Date: 20181224
  Transmission Date: 20190204
  Serious: Yes (Other)
  Sender: FDA-Public Use
  Company Number: US-PFIZER INC-2018152233

PATIENT
  Age: 72 Year
  Sex: Female
  Weight: 45.36 kg

DRUGS (2)
  1. LYRICA [Suspect]
     Active Substance: PREGABALIN
     Indication: FIBROMYALGIA
     Dosage: 25 MG, 2X/DAY
     Route: 048
     Dates: end: 20181212
  2. LYRICA [Suspect]
     Active Substance: PREGABALIN
     Dosage: 50 MG, DAILY
     Route: 048

REACTIONS (18)
  - Myocardial infarction [Unknown]
  - Dry mouth [Unknown]
  - Musculoskeletal stiffness [Unknown]
  - Gait disturbance [Unknown]
  - Diarrhoea [Unknown]
  - Blood sodium decreased [Unknown]
  - Anxiety [Not Recovered/Not Resolved]
  - Decreased appetite [Unknown]
  - Irritable bowel syndrome [Unknown]
  - Paraesthesia [Unknown]
  - Blindness [Not Recovered/Not Resolved]
  - Fall [Unknown]
  - Sinus congestion [Not Recovered/Not Resolved]
  - Paralysis [Not Recovered/Not Resolved]
  - Drug ineffective [Unknown]
  - Withdrawal syndrome [Unknown]
  - Condition aggravated [Unknown]
  - Malaise [Unknown]

NARRATIVE: CASE EVENT DATE: 2018
